FAERS Safety Report 5030621-7 (Version None)
Quarter: 2006Q2

REPORT INFORMATION
  Report Type: 
  Country: None (occurrence: None)
  Receive Date: 20060620
  Receipt Date: 20060609
  Transmission Date: 20061013
  Serious: Yes (Other)
  Sender: FDA-Public Use
  Company Number: JP-MERCK-0606USA02428

PATIENT
  Age: 83 Year
  Sex: Male

DRUGS (2)
  1. PRIMAXIN [Suspect]
     Route: 042
     Dates: start: 20060605, end: 20060605
  2. PRIMAXIN [Suspect]
     Route: 042
     Dates: start: 20060604, end: 20060604

REACTIONS (1)
  - LIVER DISORDER [None]
